FAERS Safety Report 10509923 (Version 1)
Quarter: 2014Q4

REPORT INFORMATION
  Report Type: Spontaneous
  Country: NL (occurrence: NL)
  Receive Date: 20141010
  Receipt Date: 20141010
  Transmission Date: 20150528
  Serious: Yes (Other)
  Sender: FDA-Public Use
  Company Number: NL-AUROBINDO-AUR-APL-2014-10664

PATIENT
  Age: 39 Year
  Sex: Male

DRUGS (4)
  1. MIRTAZAPINE 30MG [Suspect]
     Active Substance: MIRTAZAPINE
     Dosage: 40 MG, UNK
     Route: 065
     Dates: start: 201204
  2. TEMAZEPAM. [Concomitant]
     Active Substance: TEMAZEPAM
     Indication: PRODUCT USED FOR UNKNOWN INDICATION
     Dosage: 40 MG, UNK
     Route: 065
     Dates: start: 201204
  3. VENLAFAXINE [Suspect]
     Active Substance: VENLAFAXINE HYDROCHLORIDE
     Indication: DEPRESSION
     Dosage: 40 MG, UNK
     Route: 065
     Dates: start: 201204
  4. MIRTAZAPINE 30MG [Suspect]
     Active Substance: MIRTAZAPINE
     Indication: DEPRESSION
     Dosage: 30 MG, UNK
     Route: 065
     Dates: start: 201202, end: 201204

REACTIONS (3)
  - Aggression [Unknown]
  - Physical assault [Unknown]
  - Suicide attempt [Unknown]

NARRATIVE: CASE EVENT DATE: 201205
